FAERS Safety Report 16127412 (Version 1)
Quarter: 2019Q1

REPORT INFORMATION
  Report Type: Spontaneous
  Country: US (occurrence: US)
  Receive Date: 20190328
  Receipt Date: 20190328
  Transmission Date: 20190418
  Serious: No
  Sender: FDA-Public Use
  Company Number: US-GLENMARK PHARMACEUTICALS-2019GMK039750

PATIENT

DRUGS (4)
  1. CLOBETASOL PROPIONATE OINTMENT USP, 0.05% [Suspect]
     Active Substance: CLOBETASOL PROPIONATE
     Indication: SKIN IRRITATION
     Dosage: UNK, BID
     Route: 061
     Dates: start: 20190130, end: 20190203
  2. CLOBETASOL PROPIONATE OINTMENT USP, 0.05% [Suspect]
     Active Substance: CLOBETASOL PROPIONATE
     Indication: PAIN
     Dosage: UNK, BID
     Route: 061
     Dates: start: 201902, end: 20190207
  3. CLOBETASOL PROPIONATE OINTMENT USP, 0.05% [Suspect]
     Active Substance: CLOBETASOL PROPIONATE
     Indication: CHEMICAL BURN OF SKIN
  4. CLOBETASOL PROPIONATE OINTMENT USP, 0.05% [Suspect]
     Active Substance: CLOBETASOL PROPIONATE
     Indication: PRURITUS

REACTIONS (6)
  - Rash [Unknown]
  - Product use in unapproved indication [Unknown]
  - Application site irritation [Unknown]
  - Application site pruritus [Recovering/Resolving]
  - Application site erythema [Unknown]
  - Paraesthesia [Recovered/Resolved]

NARRATIVE: CASE EVENT DATE: 20190130
